FAERS Safety Report 4607528-X (Version None)
Quarter: 2005Q1

REPORT INFORMATION
  Report Type: 
  Country: None (occurrence: None)
  Receive Date: 20050310
  Receipt Date: 20050302
  Transmission Date: 20050727
  Serious: Yes (Hospitalization)
  Sender: FDA-Public Use
  Company Number: FRP05000178

PATIENT
  Age: 50 Year
  Sex: Female
  Weight: 91 kg

DRUGS (6)
  1. ACTONEL [Suspect]
     Dosage: 35 MG, 1/WEEK, ORAL
     Route: 048
     Dates: start: 20040805
  2. METHOTREXATE [Suspect]
     Indication: PULMONARY SARCOIDOSIS
     Dosage: 20 MG, 1/WEEK, INTRAMUSCULAR
     Route: 030
     Dates: start: 20040805
  3. PREDNISONE TAB [Concomitant]
  4. NOVORAPID (INSULIN AASPART) [Concomitant]
  5. GLUCOPHAGE [Concomitant]
  6. FOLIC ACID [Concomitant]

REACTIONS (5)
  - ARTHRALGIA [None]
  - CHOLESTASIS [None]
  - DIARRHOEA [None]
  - HYPEREOSINOPHILIC SYNDROME [None]
  - INFLAMMATION [None]
